FAERS Safety Report 11882938 (Version 3)
Quarter: 2016Q2

REPORT INFORMATION
  Report Type: Spontaneous
  Country: US (occurrence: US)
  Receive Date: 20151231
  Receipt Date: 20160531
  Transmission Date: 20160815
  Serious: Yes (Other)
  Sender: FDA-Public Use
  Company Number: US-BAYER-2015-497672

PATIENT
  Age: 82 Year
  Sex: Female
  Weight: 61.22 kg

DRUGS (1)
  1. DR. SCHOLLS ONE STEP CALLUS REMOVERS [Suspect]
     Active Substance: SALICYLIC ACID
     Indication: HYPERKERATOSIS
     Dosage: UNK
     Dates: start: 20151202, end: 20151203

REACTIONS (9)
  - Application site vesicles [Recovered/Resolved]
  - Cellulitis [Not Recovered/Not Resolved]
  - Oedema peripheral [Not Recovered/Not Resolved]
  - Pain in extremity [Not Recovered/Not Resolved]
  - Limb discomfort [Not Recovered/Not Resolved]
  - Application site ulcer [Recovered/Resolved]
  - Erythema [Not Recovered/Not Resolved]
  - Wound complication [Not Recovered/Not Resolved]
  - Pain in extremity [Recovered/Resolved]

NARRATIVE: CASE EVENT DATE: 20151203
